FAERS Safety Report 15794988 (Version 1)
Quarter: 2019Q1

REPORT INFORMATION
  Report Type: Spontaneous
  Country: IT (occurrence: IT)
  Receive Date: 20190107
  Receipt Date: 20190107
  Transmission Date: 20190417
  Serious: Yes (Other)
  Sender: FDA-Public Use
  Company Number: IT-GLAXOSMITHKLINE-IT2019000687

PATIENT
  Age: 10 Year
  Sex: Male

DRUGS (1)
  1. CYCLOVIRAN [Suspect]
     Active Substance: ACYCLOVIR
     Indication: VARICELLA
     Dosage: 40 ML, QD
     Route: 048
     Dates: start: 20181208, end: 20181210

REACTIONS (2)
  - Hyperhidrosis [Recovered/Resolved]
  - Hypothermia [Recovered/Resolved]

NARRATIVE: CASE EVENT DATE: 20181210
